FAERS Safety Report 25753873 (Version 1)
Quarter: 2025Q3

REPORT INFORMATION
  Report Type: Spontaneous
  Country: EU (occurrence: EU)
  Receive Date: 20250903
  Receipt Date: 20250903
  Transmission Date: 20251020
  Serious: Yes (Life-Threatening, Disabling)
  Sender: ROCHE
  Company Number: None

PATIENT
  Age: 83 Year
  Sex: Female

DRUGS (6)
  1. PHESGO [Suspect]
     Active Substance: HYALURONIDASE-ZZXF\PERTUZUMAB\TRASTUZUMAB
     Indication: Breast cancer female
     Route: 058
     Dates: start: 20240514, end: 20240514
  2. PHESGO [Suspect]
     Active Substance: HYALURONIDASE-ZZXF\PERTUZUMAB\TRASTUZUMAB
     Route: 058
     Dates: start: 202406, end: 202406
  3. PHESGO [Suspect]
     Active Substance: HYALURONIDASE-ZZXF\PERTUZUMAB\TRASTUZUMAB
     Dosage: CYCLE 3 - CYCLE 18?- FROM 02.07.2024 ADJUVANT PHESGO 600/600MG ALONE SUBCUTANEOUSLY EVERY 3 WEEKS DU
     Route: 058
     Dates: start: 20240702, end: 20250520
  4. CALCICHEW D3 500MG/400IU [Concomitant]
     Dosage: 500MG + 400UT, 0-0-1
  5. ANASTROZOL 1MG [Concomitant]
     Dosage: 1-0-0
  6. ZOLPIDEM TARTRATE [Concomitant]
     Active Substance: ZOLPIDEM TARTRATE

REACTIONS (3)
  - Respiratory failure [Not Recovered/Not Resolved]
  - Left ventricular dysfunction [Not Recovered/Not Resolved]
  - Heart failure with reduced ejection fraction [Not Recovered/Not Resolved]

NARRATIVE: CASE EVENT DATE: 20250812
